FAERS Safety Report 4727758-6 (Version None)
Quarter: 2005Q3

REPORT INFORMATION
  Report Type: 
  Country: None (occurrence: None)
  Receive Date: 20050727
  Receipt Date: 20050713
  Transmission Date: 20060218
  Serious: Yes (Hospitalization)
  Sender: FDA-Public Use
  Company Number: 2005EU001586

PATIENT
  Age: 49 Year
  Sex: Female

DRUGS (7)
  1. FK506(TACROLIMUS CAPSULES) [Suspect]
     Indication: RENAL TRANSPLANT
     Dosage: 2.00 MG, BID, ORAL
     Route: 048
     Dates: start: 20050412
  2. DACLIZUMAB (DACLIZUMAB) [Suspect]
     Indication: RENAL TRANSPLANT
     Dosage: 55.00 MG, OTHER, IV NOS
     Route: 042
     Dates: start: 20041205, end: 20050117
  3. MYCOPHENOLATE MOFETIL (MYCOPHENOLATE MOFETIL) [Suspect]
     Indication: RENAL TRANSPLANT
     Dosage: 1000.00 MG, BID, ORAL
     Route: 048
     Dates: start: 20050527
  4. CORTICOSTEROID NOS (CORTICOSTEROID NOS) [Suspect]
     Indication: RENAL TRANSPLANT
     Dosage: D
  5. ALPHA (ALFACALCIDOL) [Concomitant]
  6. PRAREDUCT (PRAVASTATIN SODIUM) [Concomitant]
  7. ZESTRIL [Concomitant]

REACTIONS (1)
  - INTESTINAL OBSTRUCTION [None]
